FAERS Safety Report 24194821 (Version 3)
Quarter: 2025Q3

REPORT INFORMATION
  Report Type: Report from Study
  Country: KR (occurrence: KR)
  Receive Date: 20240809
  Receipt Date: 20250724
  Transmission Date: 20251021
  Serious: Yes (Death)
  Sender: PFIZER
  Company Number: KR-PFIZER INC-202400232965

PATIENT

DRUGS (4)
  1. GEMCITABINE HYDROCHLORIDE [Suspect]
     Active Substance: GEMCITABINE HYDROCHLORIDE
     Indication: Bile duct adenocarcinoma
     Route: 042
  2. CISPLATIN [Suspect]
     Active Substance: CISPLATIN
     Indication: Bile duct adenocarcinoma
     Route: 042
  3. PLACEBO [Suspect]
     Active Substance: PLACEBO
     Indication: Bile duct adenocarcinoma
     Route: 042
  4. PLACEBO [Suspect]
     Active Substance: PLACEBO
     Route: 042

REACTIONS (1)
  - Polymyositis [Fatal]
